FAERS Safety Report 8160513-6 (Version None)
Quarter: 2012Q1

REPORT INFORMATION
  Report Type: 
  Country: None (occurrence: None)
  Receive Date: 20120223
  Receipt Date: 20110520
  Transmission Date: 20120608
  Serious: Yes (Other)
  Sender: FDA-Public Use
  Company Number: SK-PFIZER INC-2011108710

PATIENT
  Age: 62 Year
  Sex: Female

DRUGS (2)
  1. SUNITINIB MALATE [Suspect]
     Dosage: 50 MG, ALTERNATE DAY
     Route: 048
     Dates: start: 20081206
  2. SUNITINIB MALATE [Suspect]
     Indication: RENAL CANCER
     Dosage: 50 MG, 1X/DAY
     Route: 048
     Dates: start: 20070601, end: 20080101

REACTIONS (1)
  - BONE MARROW FAILURE [None]
